FAERS Safety Report 8879564 (Version 2)
Quarter: 2012Q4

REPORT INFORMATION
  Report Type: 
  Country: GB (occurrence: GB)
  Receive Date: 20121031
  Receipt Date: 20121109
  Transmission Date: 20130627
  Serious: Yes (Hospitalization)
  Sender: FDA-Public Use
  Company Number: GB-GILEAD-2012-0063589

PATIENT
  Age: 57 Year
  Sex: Female

DRUGS (22)
  1. TENOFOVIR DISOPROXIL FUMARATE [Suspect]
     Indication: HEPATITIS B VIRUS TEST POSITIVE
     Route: 048
     Dates: start: 20120912
  2. ENOXAPARIN SODIUM [Concomitant]
  3. METFORMIN [Concomitant]
  4. SIMVASTATIN [Concomitant]
  5. RAMIPRIL [Concomitant]
  6. PARACETAMOL [Concomitant]
  7. TRAMADOL [Concomitant]
  8. SENNA                              /00142201/ [Concomitant]
  9. ALLOPURINOL [Concomitant]
  10. MST CONTINUS [Concomitant]
  11. DOMPERIDONE [Concomitant]
  12. LACTULOSE [Concomitant]
  13. OMEPRAZOLE [Concomitant]
  14. GLICLAZIDE [Concomitant]
  15. SEVREDOL [Concomitant]
  16. CYCLIZINE                          /00014902/ [Concomitant]
  17. GAVISCON                           /00480201/ [Concomitant]
  18. RITUXIMAB [Concomitant]
  19. CYCLOPHOSPHAMIDE [Concomitant]
  20. VINCRISTINE [Concomitant]
  21. DOXORUBICIN [Concomitant]
  22. PREDNISOLONE [Concomitant]

REACTIONS (1)
  - Pleural effusion [Not Recovered/Not Resolved]
